FAERS Safety Report 7929898 (Version 2)
Quarter: 2015Q2

REPORT INFORMATION
  Report Type: Spontaneous
  Country: US (occurrence: US)
  Receive Date: 20110504
  Receipt Date: 20150427
  Transmission Date: 20150821
  Serious: Yes (Hospitalization, Other)
  Sender: FDA-Public Use
  Company Number: US-ROCHE-749864

PATIENT
  Sex: Male
  Weight: 63.5 kg

DRUGS (3)
  1. ACCUTANE [Suspect]
     Active Substance: ISOTRETINOIN
     Indication: ACNE
     Route: 065
     Dates: start: 1996, end: 1997
  2. MARIJUANA [Concomitant]
     Active Substance: CANNABIS SATIVA SUBSP. INDICA TOP
     Route: 065
     Dates: start: 2000, end: 2004
  3. ACCUTANE [Suspect]
     Active Substance: ISOTRETINOIN
     Route: 065
     Dates: start: 1999, end: 2000

REACTIONS (7)
  - Gastrointestinal injury [Unknown]
  - Crohn^s disease [Unknown]
  - Nasal dryness [Unknown]
  - Depression [Unknown]
  - Inflammatory bowel disease [Unknown]
  - Abdominal abscess [Unknown]
  - Lip dry [Unknown]

NARRATIVE: CASE EVENT DATE: 2000
